FAERS Safety Report 8885653 (Version 1)
Quarter: 2012Q4

REPORT INFORMATION
  Report Type: 
  Country: US (occurrence: US)
  Receive Date: 20121102
  Receipt Date: 20121102
  Transmission Date: 20130627
  Serious: Yes (Other)
  Sender: FDA-Public Use
  Company Number: US-JNJFOC-20121012323

PATIENT

DRUGS (3)
  1. DOXORUBICIN HYDROCHLORIDE (DOXIL) [Suspect]
     Indication: NEOPLASM MALIGNANT
     Dosage: 10 mg/m2, 20 mg/m2, 25 mg/m2, 30 mg/m2, and 40 mg/m2 on day 1
     Route: 042
  2. BEVACIZUMAB [Suspect]
     Indication: NEOPLASM MALIGNANT
     Dosage: 5 mg/kg, 10 mg/kg, 15 mg/kg, on day 1
     Route: 042
  3. TEMSIROLIMUS [Suspect]
     Indication: NEOPLASM MALIGNANT
     Dosage: 12.5 mg, 25 mg, 20 mg
     Route: 042

REACTIONS (23)
  - Thrombocytopenia [Unknown]
  - Neutropenia [Unknown]
  - Anaemia [Unknown]
  - Mucosal inflammation [Unknown]
  - Palmar-plantar erythrodysaesthesia syndrome [Unknown]
  - Cardiac failure [Unknown]
  - Hypertension [Unknown]
  - Fistula [Unknown]
  - Blood creatinine increased [Unknown]
  - Hypercholesterolaemia [Unknown]
  - Hypertriglyceridaemia [Unknown]
  - Toxicity to various agents [Unknown]
  - Ejection fraction decreased [Unknown]
  - Thrombocytopenia [Unknown]
  - Cardiac failure [Unknown]
  - Headache [Unknown]
  - Hypertriglyceridaemia [Unknown]
  - Blood creatinine increased [Unknown]
  - Palmar-plantar erythrodysaesthesia syndrome [Unknown]
  - Thrombocytopenia [Unknown]
  - Neutropenia [Unknown]
  - Anaemia [Unknown]
  - Mucosal inflammation [Unknown]
